FAERS Safety Report 10199962 (Version 1)
Quarter: 2014Q2

REPORT INFORMATION
  Report Type: Report from Study
  Country: JP (occurrence: JP)
  Receive Date: 20140527
  Receipt Date: 20140527
  Transmission Date: 20141212
  Serious: Yes (Other)
  Sender: FDA-Public Use
  Company Number: JP-B.I. PHARMACEUTICALS,INC./RIDGEFIELD-2014-BI-22684NB

PATIENT
  Age: 91 Year
  Sex: Female
  Weight: 41.1 kg

DRUGS (5)
  1. PRAZAXA [Suspect]
     Indication: CEREBROVASCULAR ACCIDENT PROPHYLAXIS
     Dosage: 220 MG
     Route: 048
     Dates: start: 20120116, end: 20130612
  2. GASTER D [Concomitant]
     Indication: PROPHYLAXIS
     Dosage: UNK
     Route: 048
     Dates: end: 20130612
  3. HALFDIGOXIN [Concomitant]
     Indication: ATRIAL FIBRILLATION
     Dosage: UNK
     Route: 048
     Dates: end: 20130612
  4. PURSENNID [Concomitant]
     Dosage: UNK
     Route: 048
     Dates: start: 20120121, end: 20130612
  5. ALLEGRA [Concomitant]
     Dosage: UNK
     Route: 048
     Dates: end: 20130612

REACTIONS (1)
  - Dementia [Not Recovered/Not Resolved]
